FAERS Safety Report 6077952-X (Version None)
Quarter: 2009Q1

REPORT INFORMATION
  Report Type: 
  Country: None (occurrence: None)
  Receive Date: 20090213
  Receipt Date: 20090206
  Transmission Date: 20090719
  Serious: Yes (Other)
  Sender: FDA-Public Use
  Company Number: US-KINGPHARMUSA00001-K200801383

PATIENT
  Age: 45 Year
  Sex: Female

DRUGS (25)
  1. ALTACE [Suspect]
     Indication: CORONARY ARTERY DISEASE
     Dosage: 5 MG, QD
     Route: 048
     Dates: start: 20070525, end: 20081113
  2. ALTACE [Suspect]
     Indication: CARDIAC FAILURE
  3. ALTACE [Suspect]
     Indication: MITRAL VALVE INCOMPETENCE
  4. ALTACE [Suspect]
     Indication: PULMONARY EMBOLISM
  5. SIMVASTATIN [Suspect]
     Dosage: 20 MG, UNK
  6. MARCUMAR [Suspect]
     Indication: PULMONARY EMBOLISM
  7. DECORTIN H [Concomitant]
     Indication: SYSTEMIC LUPUS ERYTHEMATOSUS
     Dosage: 10 MG, UNK
     Route: 048
     Dates: start: 20040101, end: 20080101
  8. DECORTIN H [Concomitant]
     Dosage: 20 MG, UNK
     Route: 048
  9. IMUREK                             /00001501/ [Concomitant]
     Indication: SYSTEMIC LUPUS ERYTHEMATOSUS
     Dosage: 150 MG, UNK
     Route: 048
  10. IMUREK                             /00001501/ [Concomitant]
     Dosage: 100 MG, UNK
     Route: 048
  11. CONCOR                             /00802601/ [Concomitant]
     Dosage: 10 MG, UNK
     Route: 048
  12. TAMBOCOR [Concomitant]
     Indication: ARRHYTHMIA
     Dosage: 200 MG, UNK
     Route: 048
  13. CORANGIN                           /00586303/ [Concomitant]
     Dosage: 40 MG, UNK
     Route: 048
  14. PANTOPRAZOLE [Concomitant]
     Dosage: 80 MG, UNK
     Route: 048
  15. SYMBICORT [Concomitant]
     Dosage: 320/9
  16. ARCOXIA [Concomitant]
     Dosage: 90 MG, UNK
     Route: 048
  17. SULTANOL                           /00139501/ [Concomitant]
  18. ATROVENT [Concomitant]
  19. NITROLINGUAL PUMPSPRAY [Concomitant]
     Dosage: UNK
  20. TROMCARDIN K 120 [Concomitant]
     Route: 048
  21. IDEOS                              /00944201/ [Concomitant]
     Route: 048
  22. TEPILTA                            /00115701/ [Concomitant]
  23. SPIRIVA [Concomitant]
  24. HYLO-COMOD                         /00567502/ [Concomitant]
  25. CELESTAN                           /00008502/ [Concomitant]
     Dosage: UNK

REACTIONS (14)
  - ARTHRALGIA [None]
  - COLLAGEN DISORDER [None]
  - CYSTITIS [None]
  - DRUG INTERACTION [None]
  - DRY THROAT [None]
  - FATIGUE [None]
  - HYPERHIDROSIS [None]
  - IMMOBILE [None]
  - INFLUENZA LIKE ILLNESS [None]
  - MYALGIA [None]
  - OEDEMA [None]
  - OROPHARYNGEAL PAIN [None]
  - PAIN IN EXTREMITY [None]
  - SYSTEMIC LUPUS ERYTHEMATOSUS [None]
